FAERS Safety Report 4431631-0 (Version None)
Quarter: 2004Q3

REPORT INFORMATION
  Report Type: 
  Country: None (occurrence: None)
  Receive Date: 20040721
  Receipt Date: 20040217
  Transmission Date: 20050211
  Serious: Yes (Life-Threatening, Hospitalization, Disabling)
  Sender: FDA-Public Use
  Company Number: WAES 0402USA01305

PATIENT
  Age: 86 Year
  Sex: Male

DRUGS (2)
  1. VIOXX [Suspect]
     Indication: PSORIATIC ARTHROPATHY
     Dosage: 25 MG/DAILY/PO
     Route: 048
     Dates: start: 20040201, end: 20040201
  2. HERBS (UNSPECIFIED) [Concomitant]

REACTIONS (1)
  - PANCREATITIS [None]
